FAERS Safety Report 8574903 (Version 5)
Quarter: 2013Q2

REPORT INFORMATION
  Report Type: Spontaneous
  Country: US (occurrence: US)
  Receive Date: 20120523
  Receipt Date: 20130603
  Transmission Date: 20140414
  Serious: No
  Sender: FDA-Public Use
  Company Number: US-PFIZER INC-2012121266

PATIENT
  Age: 43 Year
  Sex: Male

DRUGS (3)
  1. XALKORI [Suspect]
     Indication: LUNG NEOPLASM MALIGNANT
     Dosage: 250 MG, 2X/DAY
     Route: 048
     Dates: start: 20120309
  2. XALKORI [Suspect]
     Dosage: 250 MG, 2X/DAY
     Dates: start: 20120319
  3. XALKORI [Suspect]
     Dosage: 250 MG, 2X/DAY
     Dates: start: 20120319

REACTIONS (3)
  - Decreased appetite [Unknown]
  - Local swelling [Unknown]
  - Middle ear effusion [Unknown]
